FAERS Safety Report 22026607 (Version 1)
Quarter: 2023Q1

REPORT INFORMATION
  Report Type: Spontaneous
  Country: DE (occurrence: None)
  Receive Date: 20230223
  Receipt Date: 20230223
  Transmission Date: 20230417
  Serious: Yes (Death, Other)
  Sender: FDA-Public Use
  Company Number: DE-ROCHE-3289959

PATIENT
  Age: 65 Year
  Sex: Female
  Weight: 76 kg

DRUGS (2)
  1. CAPECITABINE [Suspect]
     Active Substance: CAPECITABINE
     Indication: Breast cancer
     Dosage: 2500 MG IN ONE DAY
     Route: 048
     Dates: start: 20220530, end: 20230125
  2. CAPECITABINE [Suspect]
     Active Substance: CAPECITABINE
     Route: 048
     Dates: start: 20230123, end: 20230125

REACTIONS (3)
  - Severe acute respiratory syndrome [Fatal]
  - Platelet disorder [Not Recovered/Not Resolved]
  - Post-acute COVID-19 syndrome [Fatal]

NARRATIVE: CASE EVENT DATE: 20230123
